FAERS Safety Report 4523331-3 (Version None)
Quarter: 2004Q4

REPORT INFORMATION
  Report Type: 
  Country: None (occurrence: None)
  Receive Date: 20041209
  Receipt Date: 20041209
  Transmission Date: 20050328
  Serious: Yes (Other)
  Sender: FDA-Public Use
  Company Number: None

PATIENT
  Age: 79 Year
  Sex: Female

DRUGS (5)
  1. AMIODARONE    200MG   EON PHARMACEUTICALS [Suspect]
     Indication: ATRIAL FIBRILLATION
     Dosage: 200MG  QD  ORAL
     Route: 048
     Dates: start: 20040608, end: 20040705
  2. DOCUSATE SODIUM [Concomitant]
  3. SPIRONOLACTONE [Concomitant]
  4. M.V.I. [Concomitant]
  5. SENNA [Concomitant]

REACTIONS (2)
  - NAUSEA [None]
  - PHARMACEUTICAL PRODUCT COMPLAINT [None]
